FAERS Safety Report 19213625 (Version 4)
Quarter: 2023Q1

REPORT INFORMATION
  Report Type: Spontaneous
  Country: US (occurrence: US)
  Receive Date: 20210504
  Receipt Date: 20230124
  Transmission Date: 20230417
  Serious: Yes (Other)
  Sender: FDA-Public Use
  Company Number: US-PFIZER INC-2021469427

PATIENT
  Age: 69 Year
  Sex: Male

DRUGS (1)
  1. XELJANZ XR [Suspect]
     Active Substance: TOFACITINIB CITRATE
     Dosage: 11 MG, DAILY (TAKE 11 MG BY MOUTH DAILY)
     Route: 048

REACTIONS (5)
  - Diverticulitis [Unknown]
  - Food allergy [Unknown]
  - Pain [Unknown]
  - Memory impairment [Unknown]
  - Drug effect less than expected [Unknown]
